FAERS Safety Report 16825486 (Version 1)
Quarter: 2019Q3

REPORT INFORMATION
  Report Type: Spontaneous
  Country: CN (occurrence: CN)
  Receive Date: 20190919
  Receipt Date: 20190919
  Transmission Date: 20191005
  Serious: Yes (Disabling)
  Sender: FDA-Public Use
  Company Number: CN-SA-2019SA256026

PATIENT
  Age: 65 Year
  Sex: Male
  Weight: 72 kg

DRUGS (3)
  1. ELOXATIN [Suspect]
     Active Substance: OXALIPLATIN
     Indication: COLON CANCER
     Dosage: 240 MG, QD
     Route: 041
     Dates: start: 20190904, end: 20190904
  2. CAPECITABINE. [Suspect]
     Active Substance: CAPECITABINE
     Indication: COLON CANCER
     Dosage: 3.5 G, QD
     Route: 048
     Dates: start: 20190904, end: 20190917
  3. GLUCOSE INJECTION [Concomitant]
     Active Substance: DEXTROSE
     Indication: COLON CANCER
     Dosage: 250 ML, QD
     Route: 041
     Dates: start: 20190904, end: 20190904

REACTIONS (4)
  - Tremor [Not Recovered/Not Resolved]
  - Hypoaesthesia [Not Recovered/Not Resolved]
  - Sleep disorder [Not Recovered/Not Resolved]
  - Hiccups [Not Recovered/Not Resolved]

NARRATIVE: CASE EVENT DATE: 20190904
